FAERS Safety Report 4834090-9 (Version None)
Quarter: 2005Q4

REPORT INFORMATION
  Report Type: 
  Country: None (occurrence: None)
  Receive Date: 20051122
  Receipt Date: 20051107
  Transmission Date: 20060501
  Serious: Yes (Hospitalization, Disabling)
  Sender: FDA-Public Use
  Company Number: US-SANOFI-SYNTHELABO-A03200503589

PATIENT
  Sex: Female
  Weight: 81.6 kg

DRUGS (9)
  1. ELOXATIN [Suspect]
     Indication: RECTAL CANCER STAGE III
     Route: 042
     Dates: start: 20050412, end: 20050412
  2. FLUOROURACIL [Concomitant]
     Route: 042
     Dates: start: 20041116, end: 20050427
  3. LEUCOVORIN [Concomitant]
     Route: 042
     Dates: start: 20041116, end: 20050427
  4. ALOXI [Concomitant]
     Route: 042
  5. DECADRON [Concomitant]
     Route: 042
  6. ATIVAN [Concomitant]
     Route: 042
  7. NEULASTA [Concomitant]
     Route: 042
  8. ARANESP [Concomitant]
     Route: 042
  9. ZOCOR [Concomitant]
     Dosage: UNK
     Route: 048

REACTIONS (6)
  - ASTHENIA [None]
  - DYSAESTHESIA [None]
  - HYPOAESTHESIA [None]
  - MUSCULAR WEAKNESS [None]
  - NEUROPATHY [None]
  - PARAPARESIS [None]
